FAERS Safety Report 19101658 (Version 1)
Quarter: 2021Q2

REPORT INFORMATION
  Report Type: Spontaneous
  Country: RU (occurrence: RU)
  Receive Date: 20210407
  Receipt Date: 20210407
  Transmission Date: 20210717
  Serious: Yes (Other)
  Sender: FDA-Public Use
  Company Number: RU-VIFOR (INTERNATIONAL) INC.-VIT-2021-02979

PATIENT
  Age: 63 Year
  Sex: Female
  Weight: 71 kg

DRUGS (8)
  1. AMYLOFER [Concomitant]
     Active Substance: IRON POLYMALTOSE
     Indication: PRODUCT USED FOR UNKNOWN INDICATION
     Route: 042
  2. PRESTARIUM [Concomitant]
     Active Substance: PERINDOPRIL
     Dosage: AS SUFFICE (ER OS) 2.5 MG DAILY
     Route: 048
  3. VELPHORO [Suspect]
     Active Substance: SUCROFERRIC OXYHYDROXIDE
     Indication: HYPERPHOSPHATAEMIA
     Route: 048
     Dates: start: 201906, end: 202102
  4. ERALFON [Concomitant]
     Route: 042
  5. PARSABIV [Concomitant]
     Active Substance: ETELCALCETIDE HYDROCHLORIDE
     Route: 042
  6. ACTRAPID [Concomitant]
     Active Substance: INSULIN HUMAN
     Dosage: 8?10 UNITS.
     Route: 058
  7. VELPHORO [Suspect]
     Active Substance: SUCROFERRIC OXYHYDROXIDE
     Route: 048
     Dates: start: 2021
  8. KARDIKET [Concomitant]
     Dosage: AS SUFFICE (PER OS) 20MG DAILY
     Route: 048

REACTIONS (2)
  - Diarrhoea [Recovered/Resolved]
  - Flatulence [Recovered/Resolved]

NARRATIVE: CASE EVENT DATE: 202101
